FAERS Safety Report 5591656-9 (Version None)
Quarter: 2008Q1

REPORT INFORMATION
  Report Type: 
  Country: None (occurrence: None)
  Receive Date: 20080115
  Receipt Date: 20080102
  Transmission Date: 20080703
  Serious: Yes (Hospitalization)
  Sender: FDA-Public Use
  Company Number: ES-ELI_LILLY_AND_COMPANY-ES200801000553

PATIENT
  Age: 76 Year
  Sex: Female

DRUGS (5)
  1. FORTEO [Suspect]
     Indication: OSTEOPOROSIS
     Dosage: 20 UG, UNKNOWN
     Route: 058
     Dates: start: 20070101
  2. VENLAFAXINE HCL [Concomitant]
     Dosage: UNK, UNKNOWN
  3. LEVODOPA [Concomitant]
     Dosage: UNK, UNKNOWN
  4. SOMAZINA [Concomitant]
     Dosage: UNK, UNKNOWN
  5. ORFIDAL [Concomitant]
     Dosage: UNK, UNKNOWN

REACTIONS (4)
  - FALL [None]
  - HIP FRACTURE [None]
  - NUCLEAR MAGNETIC RESONANCE IMAGING ABNORMAL [None]
  - SPINAL DEFORMITY [None]
